FAERS Safety Report 20978960 (Version 1)
Quarter: 2022Q2

REPORT INFORMATION
  Report Type: Other
  Country: US (occurrence: None)
  Receive Date: 20220619
  Receipt Date: 20220619
  Transmission Date: 20220721
  Serious: No
  Sender: FDA-Public Use
  Company Number: US-ROCHE-3119379

PATIENT
  Sex: Female

DRUGS (1)
  1. OCREVUS [Suspect]
     Active Substance: OCRELIZUMAB
     Indication: Relapsing-remitting multiple sclerosis
     Dosage: DOT: 22-DEC-2021, 03-NOV-2020, 21-APR-2020, 22-JUN-2021, 12-MAY-2020
     Route: 065

REACTIONS (1)
  - COVID-19 [Not Recovered/Not Resolved]
